FAERS Safety Report 10519775 (Version 1)
Quarter: 2014Q4

REPORT INFORMATION
  Report Type: Report from Study
  Country: CA (occurrence: CA)
  Receive Date: 20141015
  Receipt Date: 20141015
  Transmission Date: 20150528
  Serious: Yes (Hospitalization)
  Sender: FDA-Public Use
  Company Number: CA-BRISTOL-MYERS SQUIBB COMPANY-21463567

PATIENT
  Age: 51 Year
  Sex: Male

DRUGS (3)
  1. ERBITUX [Suspect]
     Active Substance: CETUXIMAB
     Indication: SQUAMOUS CELL CARCINOMA
     Route: 042
     Dates: start: 20140829
  2. RANITIDINE [Concomitant]
     Active Substance: RANITIDINE\RANITIDINE HYDROCHLORIDE
  3. DECADRON [Concomitant]
     Active Substance: DEXAMETHASONE

REACTIONS (1)
  - Cardiac tamponade [Unknown]

NARRATIVE: CASE EVENT DATE: 20140928
